FAERS Safety Report 7240326-X (Version None)
Quarter: 2011Q1

REPORT INFORMATION
  Report Type: 
  Country: None (occurrence: None)
  Receive Date: 20110120
  Receipt Date: 20110120
  Transmission Date: 20110831
  Serious: No
  Sender: FDA-Public Use
  Company Number: None

PATIENT
  Sex: Male
  Weight: 79.8331 kg

DRUGS (1)
  1. LYRICA [Suspect]
     Indication: PERIPHERAL VASCULAR DISORDER
     Dosage: 2 DAILY

REACTIONS (1)
  - APPARENT DEATH [None]
